FAERS Safety Report 4280683-X (Version None)
Quarter: 2004Q1

REPORT INFORMATION
  Report Type: 
  Country: None (occurrence: None)
  Receive Date: 20040129
  Receipt Date: 20040122
  Transmission Date: 20041129
  Serious: Yes (Life-Threatening)
  Sender: FDA-Public Use
  Company Number: 200410195EU

PATIENT
  Age: 58 Year
  Sex: Male

DRUGS (3)
  1. TAXOTERE [Suspect]
     Indication: CARCINOMA
     Route: 042
     Dates: start: 20030903, end: 20030924
  2. CETUXIMAB [Suspect]
     Indication: CARCINOMA
     Route: 042
     Dates: end: 20030724
  3. ARANESP [Concomitant]
     Route: 058

REACTIONS (1)
  - ANAEMIA HAEMOLYTIC AUTOIMMUNE [None]
